FAERS Safety Report 8987271 (Version 1)
Quarter: 2012Q4

REPORT INFORMATION
  Report Type: 
  Country: JP (occurrence: JP)
  Receive Date: 20121226
  Receipt Date: 20121226
  Transmission Date: 20130627
  Serious: Yes (Other)
  Sender: FDA-Public Use
  Company Number: PHHY2012JP116976

PATIENT
  Age: 59 Year
  Sex: Male

DRUGS (6)
  1. VINCRISTINE [Suspect]
     Indication: B-CELL LYMPHOMA
     Dosage: 2.2 mg, UNK
  2. METHOTREXATE [Suspect]
     Indication: B-CELL LYMPHOMA
     Dosage: 5800 mg, UNK
  3. PREDNISOLONE SANDOZ [Suspect]
     Indication: B-CELL LYMPHOMA
     Dosage: 360 mg, UNK
  4. CYCLOPHOSPHAMIDE [Suspect]
     Indication: B-CELL LYMPHOMA
     Dosage: 1200 mg, UNK
  5. RITUXIMAB [Suspect]
     Indication: B-CELL LYMPHOMA
  6. ADRIACIN [Suspect]
     Indication: B-CELL LYMPHOMA
     Dosage: 80 mg, UNK

REACTIONS (4)
  - Sweat gland tumour [Unknown]
  - Skin mass [Unknown]
  - Skin lesion [Unknown]
  - B-cell lymphoma [Unknown]
